FAERS Safety Report 23998663 (Version 1)
Quarter: 2024Q2

REPORT INFORMATION
  Report Type: Spontaneous
  Country: IN (occurrence: IN)
  Receive Date: 20240621
  Receipt Date: 20240621
  Transmission Date: 20240716
  Serious: Yes (Other)
  Sender: FDA-Public Use
  Company Number: IN-BIOCON BIOLOGICS LIMITED-BBL2024004459

PATIENT

DRUGS (1)
  1. AFLIBERCEPT [Suspect]
     Active Substance: AFLIBERCEPT
     Indication: Retinal neovascularisation
     Dosage: 2 MG/0.05 ML

REACTIONS (2)
  - Disease progression [Recovered/Resolved]
  - Retinoschisis [Recovered/Resolved]
